FAERS Safety Report 13492041 (Version 1)
Quarter: 2017Q2

REPORT INFORMATION
  Report Type: Spontaneous
  Country: US (occurrence: US)
  Receive Date: 20170427
  Receipt Date: 20170427
  Transmission Date: 20170830
  Serious: No
  Sender: FDA-Public Use
  Company Number: PHEH2017US012052

PATIENT
  Sex: Female

DRUGS (1)
  1. GLEEVEC [Suspect]
     Active Substance: IMATINIB MESYLATE
     Indication: EXPOSURE VIA PARTNER
     Dosage: FETAL EXPOSURE VIA FATHER
     Route: 050

REACTIONS (1)
  - Exposure via partner [Unknown]
